FAERS Safety Report 7178553-2 (Version None)
Quarter: 2010Q4

REPORT INFORMATION
  Report Type: 
  Country: None (occurrence: None)
  Receive Date: 20101221
  Receipt Date: 20101207
  Transmission Date: 20110411
  Serious: Yes (Hospitalization, Other)
  Sender: FDA-Public Use
  Company Number: AT-BIOGENIDEC-2010BI041689

PATIENT
  Age: 37 Year
  Sex: Female

DRUGS (1)
  1. TYSABRI [Suspect]
     Indication: MULTIPLE SCLEROSIS
     Route: 042
     Dates: start: 20070601, end: 20101101

REACTIONS (5)
  - DEVICE RELATED SEPSIS [None]
  - GAIT DISTURBANCE [None]
  - HEMIANOPIA HOMONYMOUS [None]
  - PROGRESSIVE MULTIFOCAL LEUKOENCEPHALOPATHY [None]
  - READING DISORDER [None]
